FAERS Safety Report 23657783 (Version 4)
Quarter: 2024Q2

REPORT INFORMATION
  Report Type: Report from Study
  Country: GR (occurrence: GR)
  Receive Date: 20240321
  Receipt Date: 20240401
  Transmission Date: 20240716
  Serious: Yes (Hospitalization)
  Sender: FDA-Public Use
  Company Number: GR-ABBVIE-5686905

PATIENT
  Sex: Male
  Weight: 72 kg

DRUGS (5)
  1. CARBIDOPA\LEVODOPA [Suspect]
     Active Substance: CARBIDOPA\LEVODOPA
     Indication: Parkinson^s disease
     Dosage: MORNING DOSE: 8.5ML; CONTINUOUS RATE: 3.4ML/H; EXTRA DOSE: 1.8ML
     Route: 050
     Dates: start: 20221015
  2. CARBIDOPA\LEVODOPA [Suspect]
     Active Substance: CARBIDOPA\LEVODOPA
     Dosage: MORNING DOSE: 8.5ML; CONTINUOUS RATE: 3.4ML/H; EXTRA DOSE: 1.8ML
     Route: 050
  3. CARBIDOPA\LEVODOPA [Suspect]
     Active Substance: CARBIDOPA\LEVODOPA
     Dosage: MORNING DOSE: 8.5ML; CONTINUOUS RATE: 3.6ML/H; EXTRA DOSE: 1.8ML
     Route: 050
  4. CARBIDOPA\LEVODOPA [Suspect]
     Active Substance: CARBIDOPA\LEVODOPA
     Dosage: MORNING DOSE: 8.5ML; CONTINUOUS RATE: 3.4ML/H; EXTRA DOSE: 1.8ML
     Route: 050
  5. CARBIDOPA\LEVODOPA [Suspect]
     Active Substance: CARBIDOPA\LEVODOPA
     Dosage: MORNING DOSE: 8.5ML; CONTINUOUS RATE: 3.6ML/H; EXTRA DOSE: 1.8ML
     Route: 050

REACTIONS (7)
  - Gastrointestinal disorder [Recovering/Resolving]
  - Medical device discomfort [Unknown]
  - Dyspnoea [Unknown]
  - Dysphagia [Not Recovered/Not Resolved]
  - Product administration error [Unknown]
  - Wrong technique in product usage process [Unknown]
  - Product quality issue [Unknown]
